FAERS Safety Report 9268915 (Version 6)
Quarter: 2013Q4

REPORT INFORMATION
  Report Type: Report from Study
  Country: CA (occurrence: CA)
  Receive Date: 20130503
  Receipt Date: 20131101
  Transmission Date: 20140711
  Serious: Yes (Other)
  Sender: FDA-Public Use
  Company Number: CA-ROCHE-1185133

PATIENT
  Sex: Female
  Weight: 47 kg

DRUGS (5)
  1. ACTEMRA [Suspect]
     Indication: RHEUMATOID ARTHRITIS
     Dosage: DATE OF LAST INFUSION:/DEC/2012.
     Route: 042
     Dates: start: 20120523
  2. INSULIN [Concomitant]
  3. CYMBALTA [Concomitant]
  4. CRANBERRY [Concomitant]
     Route: 065
  5. PREDNISONE [Concomitant]

REACTIONS (7)
  - Fibromyalgia [Not Recovered/Not Resolved]
  - Pneumonia [Recovered/Resolved]
  - Kidney infection [Not Recovered/Not Resolved]
  - Eye infection [Not Recovered/Not Resolved]
  - Cystitis [Not Recovered/Not Resolved]
  - Localised infection [Recovering/Resolving]
  - Wound [Not Recovered/Not Resolved]
